FAERS Safety Report 19193233 (Version 2)
Quarter: 2021Q2

REPORT INFORMATION
  Report Type: Report from Study
  Country: None (occurrence: US)
  Receive Date: 20210429
  Receipt Date: 20210503
  Transmission Date: 20210717
  Serious: Yes (Hospitalization, Other)
  Sender: FDA-Public Use
  Company Number: US-ABBVIE-18K-163-3123999-00

PATIENT

DRUGS (1)
  1. IMBRUVICA [Suspect]
     Active Substance: IBRUTINIB
     Indication: CHRONIC LYMPHOCYTIC LEUKAEMIA
     Dosage: UNK
     Route: 065
     Dates: start: 20161009, end: 20180724

REACTIONS (2)
  - Diffuse large B-cell lymphoma [Recovered/Resolved]
  - Squamous cell carcinoma of lung [Recovered/Resolved with Sequelae]

NARRATIVE: CASE EVENT DATE: 20180516
